FAERS Safety Report 23042428 (Version 1)
Quarter: 2023Q4

REPORT INFORMATION
  Report Type: Report from Study
  Country: CH (occurrence: CH)
  Receive Date: 20231008
  Receipt Date: 20231008
  Transmission Date: 20240109
  Serious: Yes (Death)
  Sender: FDA-Public Use
  Company Number: CH-ABBVIE-5440510

PATIENT
  Age: 84 Year
  Sex: Male

DRUGS (3)
  1. CARBIDOPA\LEVODOPA [Suspect]
     Active Substance: CARBIDOPA\LEVODOPA
     Indication: Parkinson^s disease
     Dosage: FREQUENCY TEXT: 24H THERAPY
     Route: 050
     Dates: start: 20200210
  2. CARBIDOPA\LEVODOPA [Suspect]
     Active Substance: CARBIDOPA\LEVODOPA
     Dosage: MD: 5.5ML, CRD: 5.0ML/H, CRD: 3.0ML/H, ED: 2.5 ML
     Route: 050
     Dates: start: 20230904, end: 20231005
  3. CARBIDOPA\LEVODOPA [Suspect]
     Active Substance: CARBIDOPA\LEVODOPA
     Dosage: MD: 5.5ML, CRD: 4.8ML/H, CRD: 3.4ML/H, ED: 2.0 ML;  FREQUENCY TEXT: 24H THERAPY
     Route: 050
     Dates: start: 20230816, end: 20230904

REACTIONS (1)
  - Death [Fatal]

NARRATIVE: CASE EVENT DATE: 20231005
